FAERS Safety Report 17856946 (Version 2)
Quarter: 2020Q3

REPORT INFORMATION
  Report Type: Spontaneous
  Country: US (occurrence: US)
  Receive Date: 20200603
  Receipt Date: 20200727
  Transmission Date: 20201103
  Serious: No
  Sender: FDA-Public Use
  Company Number: NVSC2020US154182

PATIENT

DRUGS (2)
  1. ADAKVEO [Suspect]
     Active Substance: CRIZANLIZUMAB-TMCA
     Indication: SICKLE CELL ANAEMIA WITH CRISIS
  2. ADAKVEO [Suspect]
     Active Substance: CRIZANLIZUMAB-TMCA
     Indication: SICKLE CELL DISEASE
     Dosage: 5 MG/KG, QW (WEEK 0, WEEK 2, AND EVERY 4 WEEKS)
     Route: 042

REACTIONS (2)
  - Vomiting [Unknown]
  - Nausea [Unknown]
